FAERS Safety Report 17867289 (Version 1)
Quarter: 2020Q2

REPORT INFORMATION
  Report Type: Spontaneous
  Country: FR (occurrence: FR)
  Receive Date: 20200605
  Receipt Date: 20200605
  Transmission Date: 20200714
  Serious: Yes (Life-Threatening)
  Sender: FDA-Public Use
  Company Number: NVSC2020FR155028

PATIENT
  Sex: Male
  Weight: 90 kg

DRUGS (4)
  1. IMETH [Suspect]
     Active Substance: METHOTREXATE SODIUM
     Indication: SPONDYLITIS
     Dosage: 20 MG
     Route: 048
     Dates: start: 2012
  2. STELARA [Suspect]
     Active Substance: USTEKINUMAB
     Indication: SPONDYLITIS
     Dosage: 90 MG
     Route: 065
     Dates: start: 20180118, end: 201911
  3. REMICADE [Suspect]
     Active Substance: INFLIXIMAB
     Indication: SPONDYLITIS
     Dosage: 500 MG
     Route: 065
     Dates: start: 201501, end: 201610
  4. COSENTYX [Suspect]
     Active Substance: SECUKINUMAB
     Indication: SPONDYLITIS
     Dosage: 300 MG
     Route: 065
     Dates: start: 20161026, end: 201801

REACTIONS (2)
  - Swelling [Recovered/Resolved]
  - Thyroid cancer [Recovering/Resolving]

NARRATIVE: CASE EVENT DATE: 2016
